FAERS Safety Report 10205435 (Version 1)
Quarter: 2014Q2

REPORT INFORMATION
  Report Type: Spontaneous
  Country: US (occurrence: US)
  Receive Date: 20140529
  Receipt Date: 20140529
  Transmission Date: 20141212
  Serious: Yes (Other)
  Sender: FDA-Public Use
  Company Number: US-GILEAD-2014-0103284

PATIENT
  Age: 24 Year
  Sex: Male

DRUGS (1)
  1. ATRIPLA [Suspect]
     Indication: HIV INFECTION
     Route: 065

REACTIONS (3)
  - Opportunistic infection [Unknown]
  - Genotype drug resistance test positive [Unknown]
  - Sexually transmitted disease [Unknown]
